FAERS Safety Report 13245784 (Version 1)
Quarter: 2017Q1

REPORT INFORMATION
  Report Type: Report from Study
  Country: GB (occurrence: GB)
  Receive Date: 20170217
  Receipt Date: 20170217
  Transmission Date: 20170428
  Serious: Yes (Death)
  Sender: FDA-Public Use
  Company Number: GB-ROCHE-1892115

PATIENT

DRUGS (5)
  1. METHADONE [Suspect]
     Active Substance: METHADONE HYDROCHLORIDE
     Indication: DRUG DEPENDENCE
     Route: 065
  2. BUPRENORPHINE. [Suspect]
     Active Substance: BUPRENORPHINE
     Indication: DRUG DEPENDENCE
     Route: 065
  3. MORPHINE SLOW RELEASE [Suspect]
     Active Substance: MORPHINE SULFATE
     Indication: DRUG DEPENDENCE
     Route: 065
  4. DIAZEPAM. [Suspect]
     Active Substance: DIAZEPAM
     Indication: DRUG DEPENDENCE
     Dosage: UP TO 30 MG/DAY
     Route: 065
  5. CLONAZEPAM. [Suspect]
     Active Substance: CLONAZEPAM
     Indication: DRUG DEPENDENCE
     Dosage: UP TO 8 MG/DAY
     Route: 065

REACTIONS (3)
  - Drug dependence [Unknown]
  - Cardiac arrest [Fatal]
  - Accidental overdose [Fatal]
